FAERS Safety Report 8007152-5 (Version None)
Quarter: 2011Q4

REPORT INFORMATION
  Report Type: 
  Country: None (occurrence: None)
  Receive Date: 20111222
  Receipt Date: 20111222
  Transmission Date: 20120403
  Serious: Yes (Hospitalization)
  Sender: FDA-Public Use
  Company Number: None

PATIENT
  Age: 35 Year
  Sex: Male
  Weight: 77.6 kg

DRUGS (2)
  1. ACETAMINOPHEN [Suspect]
     Indication: PAIN
     Dosage: 10 TAB ONCE PO
     Route: 048
     Dates: start: 20110503, end: 20110503
  2. MIRTAZAPINE [Suspect]
     Indication: DEPRESSION
     Dosage: 330 MG ONCE PO
     Route: 048
     Dates: start: 20110503, end: 20110503

REACTIONS (6)
  - INTENTIONAL DRUG MISUSE [None]
  - SOMNOLENCE [None]
  - INCORRECT DOSE ADMINISTERED [None]
  - DRUG LEVEL INCREASED [None]
  - SEDATION [None]
  - CONFUSIONAL STATE [None]
